FAERS Safety Report 25804177 (Version 1)
Quarter: 2025Q3

REPORT INFORMATION
  Report Type: Spontaneous
  Country: US (occurrence: None)
  Receive Date: 20250915
  Receipt Date: 20250915
  Transmission Date: 20251021
  Serious: Yes (Disabling)
  Sender: FDA-CTU
  Company Number: None

PATIENT
  Age: 73 Year
  Sex: Male
  Weight: 66.6 kg

DRUGS (5)
  1. DUTASTERIDE [Suspect]
     Active Substance: DUTASTERIDE
     Indication: Benign prostatic hyperplasia
     Dosage: OTHER QUANTITY : 30 CAPSULE(S);?FREQUENCY : DAILY;?
     Route: 048
     Dates: start: 20250503, end: 20250705
  2. LOSARTAN 50MG/DAY [Concomitant]
  3. VITAMIN D 2000 UNITS/DAY [Concomitant]
  4. CALCIUM CITRATE 1000MG/DAY [Concomitant]
  5. CENTRUM MULTIVITAMIN ONE/DAY [Concomitant]

REACTIONS (3)
  - Erectile dysfunction [None]
  - Erectile dysfunction [None]
  - Orgasm abnormal [None]

NARRATIVE: CASE EVENT DATE: 20250705
